FAERS Safety Report 16919091 (Version 1)
Quarter: 2019Q4

REPORT INFORMATION
  Report Type: Report from Study
  Country: None (occurrence: US)
  Receive Date: 20191015
  Receipt Date: 20191015
  Transmission Date: 20200122
  Serious: Yes (Other)
  Sender: FDA-Public Use
  Company Number: US-ABBVIE-19K-163-2842666-00

PATIENT
  Sex: Male

DRUGS (3)
  1. HUMIRA [Suspect]
     Active Substance: ADALIMUMAB
     Indication: COLITIS ULCERATIVE
     Route: 058
  2. HUMIRA [Suspect]
     Active Substance: ADALIMUMAB
     Indication: CROHN^S DISEASE
     Dosage: CITRATE FREE
     Route: 058
     Dates: end: 20190826
  3. HUMIRA [Suspect]
     Active Substance: ADALIMUMAB
     Indication: HIDRADENITIS

REACTIONS (7)
  - Respiratory tract infection [Unknown]
  - Anal fistula [Not Recovered/Not Resolved]
  - Pyrexia [Unknown]
  - Cough [Not Recovered/Not Resolved]
  - Purulence [Not Recovered/Not Resolved]
  - Dyspnoea [Unknown]
  - Thrombosis [Not Recovered/Not Resolved]
